FAERS Safety Report 10435907 (Version 1)
Quarter: 2014Q3

REPORT INFORMATION
  Report Type: Spontaneous
  Country: US (occurrence: US)
  Receive Date: 20140908
  Receipt Date: 20140908
  Transmission Date: 20150326
  Serious: No
  Sender: FDA-Public Use
  Company Number: US-GLAXOSMITHKLINE-A1076054A

PATIENT
  Age: 75 Year
  Sex: Female

DRUGS (1)
  1. BREO ELLIPTA [Suspect]
     Active Substance: FLUTICASONE FUROATE\VILANTEROL TRIFENATATE
     Indication: PRODUCT USED FOR UNKNOWN INDICATION
     Dosage: 100MCG UNKNOWN
     Route: 065

REACTIONS (4)
  - Lung disorder [Unknown]
  - Dysphonia [Not Recovered/Not Resolved]
  - Aphasia [Not Recovered/Not Resolved]
  - Cardiac disorder [Unknown]
